FAERS Safety Report 6630223-2 (Version None)
Quarter: 2010Q1

REPORT INFORMATION
  Report Type: 
  Country: None (occurrence: None)
  Receive Date: 20100311
  Receipt Date: 20100305
  Transmission Date: 20100710
  Serious: Yes (Death)
  Sender: FDA-Public Use
  Company Number: A0848670A

PATIENT
  Age: 56 Year
  Sex: Male

DRUGS (8)
  1. ZOFRAN [Suspect]
     Indication: PROPHYLAXIS OF NAUSEA AND VOMITING
     Dosage: 1TAB TWICE PER DAY
     Route: 048
     Dates: start: 20091001, end: 20100222
  2. CHEMOTHERAPY [Concomitant]
  3. DILAUDID [Concomitant]
  4. ATIVAN [Concomitant]
  5. PREVACID [Concomitant]
  6. MS CONTIN [Concomitant]
  7. DEXAMETHASONE [Concomitant]
  8. MEGACE [Concomitant]

REACTIONS (1)
  - DEATH [None]
